FAERS Safety Report 19703440 (Version 1)
Quarter: 2021Q3

REPORT INFORMATION
  Report Type: Spontaneous
  Country: US (occurrence: US)
  Receive Date: 20210816
  Receipt Date: 20210816
  Transmission Date: 20211014
  Serious: No
  Sender: FDA-Public Use
  Company Number: US-TEVA-2021-US-1940654

PATIENT
  Sex: Female

DRUGS (1)
  1. TAMOXIFEN CITRATE ACTAVIS [Suspect]
     Active Substance: TAMOXIFEN CITRATE
     Route: 065
     Dates: start: 202103

REACTIONS (9)
  - Feeling abnormal [Recovered/Resolved]
  - Dizziness [Recovered/Resolved]
  - Boredom [Unknown]
  - Nausea [Recovered/Resolved]
  - Depressed mood [Recovered/Resolved]
  - Hot flush [Recovered/Resolved]
  - Pain in extremity [Not Recovered/Not Resolved]
  - Anxiety [Recovered/Resolved]
  - Product formulation issue [Unknown]

NARRATIVE: CASE EVENT DATE: 2021
